FAERS Safety Report 7326074-6 (Version None)
Quarter: 2011Q1

REPORT INFORMATION
  Report Type: 
  Country: None (occurrence: None)
  Receive Date: 20110302
  Receipt Date: 20110218
  Transmission Date: 20110831
  Serious: Yes (Hospitalization, Other)
  Sender: FDA-Public Use
  Company Number: US-ROCHE-697991

PATIENT
  Sex: Male
  Weight: 101.2 kg

DRUGS (10)
  1. CLARAVIS [Suspect]
     Indication: ACNE
     Route: 065
     Dates: start: 20030901, end: 20031001
  2. ACCUTANE [Suspect]
     Route: 065
     Dates: start: 19970101
  3. ACCUTANE [Suspect]
     Route: 065
     Dates: start: 19940101
  4. DUAC [Concomitant]
     Indication: ACNE
  5. ACCUTANE [Suspect]
     Indication: ACNE
     Route: 065
     Dates: start: 19870303
  6. ACCUTANE [Suspect]
     Route: 065
     Dates: start: 20030911, end: 20040401
  7. ACCUTANE [Suspect]
     Route: 065
     Dates: start: 19950101
  8. ACCUTANE [Suspect]
     Route: 065
     Dates: start: 19960101
  9. AMNESTEEM [Suspect]
     Indication: ACNE
     Route: 065
     Dates: start: 20031001, end: 20040201
  10. DIFFERIN [Concomitant]
     Indication: ACNE

REACTIONS (13)
  - INFLAMMATORY BOWEL DISEASE [None]
  - BLOOD TRIGLYCERIDES INCREASED [None]
  - ANAL ABSCESS [None]
  - LIVER FUNCTION TEST ABNORMAL [None]
  - CROHN'S DISEASE [None]
  - DEPRESSION [None]
  - LIP DRY [None]
  - ANAL FISTULA [None]
  - SMALL INTESTINAL OBSTRUCTION [None]
  - FATIGUE [None]
  - ORAL HERPES [None]
  - DRY EYE [None]
  - HEADACHE [None]
